FAERS Safety Report 9131967 (Version 2)
Quarter: 2013Q2

REPORT INFORMATION
  Report Type: Spontaneous
  Country: PH (occurrence: PH)
  Receive Date: 20130301
  Receipt Date: 20130416
  Transmission Date: 20140414
  Serious: Yes (Death, Other)
  Sender: FDA-Public Use
  Company Number: PH-BAXTER-2013BAX007131

PATIENT
  Age: 47 Year
  Sex: Male

DRUGS (1)
  1. DIANEAL PD2 WITH 1.5% DEXTROSE [Suspect]
     Indication: PERITONEAL DIALYSIS
     Route: 033
     Dates: start: 20111019

REACTIONS (4)
  - Cardiac arrest [Fatal]
  - Peritonitis [Not Recovered/Not Resolved]
  - Peritoneal dialysis complication [Unknown]
  - Hypertension [Unknown]
